FAERS Safety Report 8489878-2 (Version None)
Quarter: 2012Q3

REPORT INFORMATION
  Report Type: 
  Country: None (occurrence: None)
  Receive Date: 20120705
  Receipt Date: 20120702
  Transmission Date: 20120928
  Serious: Yes (Death, Other)
  Sender: FDA-Public Use
  Company Number: PHHY2012FR056685

PATIENT
  Age: 85 Year
  Sex: Female

DRUGS (2)
  1. PREDNISONE [Suspect]
     Indication: RHEUMATOID VASCULITIS
     Dosage: 5 MG/ DAY
     Route: 048
  2. RITUXIMAB [Suspect]
     Indication: RHEUMATOID VASCULITIS
     Dosage: 1 G, Q6H

REACTIONS (6)
  - SEPSIS [None]
  - EXTREMITY NECROSIS [None]
  - GANGRENE [None]
  - INFECTION [None]
  - VASCULITIS [None]
  - OCULAR ISCHAEMIC SYNDROME [None]
